FAERS Safety Report 9251632 (Version 2)
Quarter: 2014Q1

REPORT INFORMATION
  Report Type: Spontaneous
  Country: FR (occurrence: FR)
  Receive Date: 20130424
  Receipt Date: 20140104
  Transmission Date: 20141002
  Serious: Yes (Hospitalization, Other)
  Sender: FDA-Public Use
  Company Number: 2013SP003729

PATIENT
  Age: 7 Year
  Sex: Male
  Weight: 22 kg

DRUGS (24)
  1. VANCOMYCIN [Suspect]
     Indication: PYREXIA
     Route: 042
     Dates: start: 20130120, end: 20130129
  2. VANCOMYCIN [Suspect]
     Indication: FEBRILE BONE MARROW APLASIA
     Route: 042
     Dates: start: 20130120, end: 20130129
  3. VANCOMYCIN [Suspect]
     Indication: PYREXIA
     Dates: start: 201309
  4. VANCOMYCIN [Suspect]
     Indication: FEBRILE BONE MARROW APLASIA
     Dates: start: 201309
  5. VANCOMYCIN [Suspect]
     Indication: PYREXIA
     Dates: start: 201310
  6. VANCOMYCIN [Suspect]
     Indication: FEBRILE BONE MARROW APLASIA
     Dates: start: 201310
  7. DOXORUBICIN [Suspect]
     Indication: BURKITT^S LYMPHOMA
     Route: 042
     Dates: start: 20121223, end: 20130110
  8. EUPANTOL [Suspect]
     Indication: PROPHYLAXIS AGAINST GASTROINTESTINAL ULCER
     Route: 042
     Dates: start: 20130123, end: 20130131
  9. EUPANTOL [Suspect]
     Indication: PROPHYLAXIS AGAINST GASTROINTESTINAL ULCER
     Dates: start: 201308
  10. EUPANTOL [Suspect]
     Indication: PROPHYLAXIS AGAINST GASTROINTESTINAL ULCER
     Dates: start: 201309
  11. EUPANTOL [Suspect]
     Indication: PROPHYLAXIS AGAINST GASTROINTESTINAL ULCER
     Dates: start: 201310
  12. METHYLPREDNISOLONE [Suspect]
     Indication: BURKITT^S LYMPHOMA
     Dates: start: 20121215, end: 20121221
  13. METHYLPREDNISOLONE [Suspect]
     Indication: BURKITT^S LYMPHOMA
     Dates: start: 20121222, end: 20121226
  14. METHYLPREDNISOLONE [Suspect]
     Indication: BURKITT^S LYMPHOMA
     Dates: start: 20121227, end: 20121227
  15. METHYLPREDNISOLONE [Suspect]
     Indication: BURKITT^S LYMPHOMA
     Dates: start: 201309, end: 201309
  16. METRONIDAZOLE [Suspect]
     Indication: PYREXIA
     Route: 042
     Dates: start: 20130124, end: 20130128
  17. METRONIDAZOLE [Suspect]
     Indication: DIARRHOEA
     Route: 042
     Dates: start: 20130124, end: 20130128
  18. METRONIDAZOLE [Suspect]
     Indication: PYREXIA
     Dates: start: 201308
  19. METRONIDAZOLE [Suspect]
     Indication: DIARRHOEA
     Dates: start: 201308
  20. ACICLOVIR [Suspect]
     Indication: PYREXIA
     Route: 042
     Dates: start: 20130122, end: 20130129
  21. VINCRISTINE [Concomitant]
     Indication: BURKITT^S LYMPHOMA
     Dates: start: 20121215
  22. CYCLOPHOSPHAMIDE [Concomitant]
     Indication: BURKITT^S LYMPHOMA
     Dates: start: 20121215
  23. HYDROCORTISONE HEMISUCCINATE [Concomitant]
     Indication: BURKITT^S LYMPHOMA
     Route: 037
     Dates: start: 20121215
  24. METHOTREXATE [Concomitant]
     Indication: BURKITT^S LYMPHOMA
     Dates: start: 20121215

REACTIONS (5)
  - Pancreatitis [Recovered/Resolved]
  - Amylase increased [Recovered/Resolved]
  - Lipase increased [Recovered/Resolved]
  - Pyrexia [Unknown]
  - Off label use [Unknown]
